FAERS Safety Report 24873966 (Version 2)
Quarter: 2025Q1

REPORT INFORMATION
  Report Type: Report from Study
  Country: EG (occurrence: EG)
  Receive Date: 20250122
  Receipt Date: 20250219
  Transmission Date: 20250408
  Serious: Yes (Other)
  Sender: NOVARTIS
  Company Number: EG-002147023-NVSC2025EG010203

PATIENT
  Sex: Female
  Weight: 80 kg

DRUGS (4)
  1. MAYZENT [Suspect]
     Active Substance: SIPONIMOD
     Indication: Multiple sclerosis
     Dosage: 2 MG, QD
     Route: 048
  2. PLAVIX [Suspect]
     Active Substance: CLOPIDOGREL BISULFATE
     Indication: Cardiac disorder
     Dosage: 75 MG, QD (TABLET)
     Route: 048
     Dates: start: 20250115
  3. ASPIRIN [Suspect]
     Active Substance: ASPIRIN
     Indication: Cardiac disorder
     Dosage: 100 MG, QD (TABLET)
     Route: 048
     Dates: start: 20250115
  4. BISOPROLOL FUMARATE [Suspect]
     Active Substance: BISOPROLOL FUMARATE
     Indication: Cardiac disorder
     Dosage: 5 MG, QD (TABLET)
     Route: 048

REACTIONS (4)
  - Diabetes mellitus [Unknown]
  - Myocardial infarction [Unknown]
  - Hypertension [Not Recovered/Not Resolved]
  - Blood thyroid stimulating hormone increased [Unknown]
